FAERS Safety Report 10690161 (Version 1)
Quarter: 2015Q1

REPORT INFORMATION
  Report Type: Report from Study
  Country: US (occurrence: US)
  Receive Date: 20150105
  Receipt Date: 20150105
  Transmission Date: 20150720
  Serious: No
  Sender: FDA-Public Use
  Company Number: US-AMGEN INC.-USASL2014101490

PATIENT
  Age: 43 Year
  Sex: Male
  Weight: 81.63 kg

DRUGS (1)
  1. ENBREL [Suspect]
     Active Substance: ETANERCEPT
     Indication: PRODUCT USED FOR UNKNOWN INDICATION
     Dosage: 50 MG, QWK
     Route: 058
     Dates: start: 201409

REACTIONS (2)
  - Nasopharyngitis [Unknown]
  - Nasal congestion [Unknown]

NARRATIVE: CASE EVENT DATE: 2014
